FAERS Safety Report 15817891 (Version 4)
Quarter: 2019Q1

REPORT INFORMATION
  Report Type: Spontaneous
  Country: US (occurrence: US)
  Receive Date: 20190113
  Receipt Date: 20190306
  Transmission Date: 20190417
  Serious: No
  Sender: FDA-Public Use
  Company Number: US-TEVA-2019-US-996512

PATIENT
  Age: 8 Decade
  Sex: Female

DRUGS (4)
  1. AJOVY [Suspect]
     Active Substance: FREMANEZUMAB-VFRM
     Route: 065
  2. LOSARTAN. [Concomitant]
     Active Substance: LOSARTAN
  3. VASCEPA [Concomitant]
     Active Substance: ICOSAPENT ETHYL
  4. COREG [Concomitant]
     Active Substance: CARVEDILOL

REACTIONS (5)
  - Cardiac complication associated with device [Unknown]
  - Back pain [Unknown]
  - Pain [Unknown]
  - Tachycardia [Recovered/Resolved]
  - Blood pressure increased [Recovered/Resolved]

NARRATIVE: CASE EVENT DATE: 201811
